FAERS Safety Report 5739581-4 (Version None)
Quarter: 2008Q2

REPORT INFORMATION
  Report Type: 
  Country: None (occurrence: None)
  Receive Date: 20080513
  Receipt Date: 20080428
  Transmission Date: 20081010
  Serious: Yes (Death, Hospitalization, Disabling, Other)
  Sender: FDA-Public Use
  Company Number: S08-UKI-01696-01

PATIENT
  Age: 64 Year
  Sex: Male

DRUGS (3)
  1. ESCITALOPRAM [Suspect]
     Dates: start: 20080201
  2. TORISEL [Suspect]
     Indication: RENAL CELL CARCINOMA
     Dates: start: 20080101
  3. SUPENT (SUNITINIE MALATE) [Concomitant]

REACTIONS (11)
  - ASPARTATE AMINOTRANSFERASE INCREASED [None]
  - BLOOD ALKALINE PHOSPHATASE INCREASED [None]
  - BLOOD CREATINE INCREASED [None]
  - BLOOD POTASSIUM INCREASED [None]
  - FATIGUE [None]
  - HYPERKALAEMIA [None]
  - HYPONATRAEMIA [None]
  - MALAISE [None]
  - MALIGNANT NEOPLASM PROGRESSION [None]
  - MUCOSAL INFLAMMATION [None]
  - RENAL CANCER METASTATIC [None]
